FAERS Safety Report 6981957-1 (Version None)
Quarter: 2010Q3

REPORT INFORMATION
  Report Type: 
  Country: None (occurrence: None)
  Receive Date: 20100909
  Receipt Date: 20100831
  Transmission Date: 20110219
  Serious: Yes (Other)
  Sender: FDA-Public Use
  Company Number: 1-US2010-39491

PATIENT
  Age: 67 Year

DRUGS (4)
  1. VENTAVIS [Suspect]
     Indication: PULMONARY ARTERIAL HYPERTENSION
     Dosage: UG, 8 X DAY, RESPIRATORY
     Route: 055
  2. COUMADIN [Concomitant]
  3. VASTAREL (TRIMETAZIDINE HYDROCHLORIDE) [Concomitant]
  4. ALDACTAZIDE [Concomitant]

REACTIONS (1)
  - CEREBRAL HAEMORRHAGE [None]
